FAERS Safety Report 7452308-3 (Version None)
Quarter: 2011Q2

REPORT INFORMATION
  Report Type: 
  Country: None (occurrence: None)
  Receive Date: 20110502
  Receipt Date: 20110418
  Transmission Date: 20111010
  Serious: Yes (Other)
  Sender: FDA-Public Use
  Company Number: US-JNJFOC-20110408708

PATIENT
  Age: 71 Year
  Sex: Female
  Weight: 96.16 kg

DRUGS (3)
  1. COREG [Concomitant]
     Indication: HYPERTENSION
     Route: 050
  2. DIOVAN [Concomitant]
     Indication: HYPERTENSION
     Route: 050
  3. VISINE EYE DROPS [Suspect]
     Indication: OCULAR HYPERAEMIA
     Dosage: ONE DROP IN EACH EYE ONCE TWICE
     Route: 047

REACTIONS (3)
  - NERVOUSNESS [None]
  - DIZZINESS [None]
  - BLOOD PRESSURE INCREASED [None]
